FAERS Safety Report 16834583 (Version 1)
Quarter: 2019Q3

REPORT INFORMATION
  Report Type: Spontaneous
  Country: FR (occurrence: FR)
  Receive Date: 20190920
  Receipt Date: 20190920
  Transmission Date: 20191005
  Serious: Yes (Hospitalization, Other)
  Sender: FDA-Public Use
  Company Number: FR-MYLANLABS-2019M1087654

PATIENT
  Age: 82 Year
  Sex: Female
  Weight: 54 kg

DRUGS (4)
  1. LOSARTAN. [Suspect]
     Active Substance: LOSARTAN
     Indication: PRODUCT USED FOR UNKNOWN INDICATION
     Dosage: DOSE DECREASED
     Route: 065
  2. ATACAND [Suspect]
     Active Substance: CANDESARTAN CILEXETIL
     Indication: HYPERTENSION
     Dosage: 1/4 TABLET
     Route: 048
  3. MAVIRET [Interacting]
     Active Substance: GLECAPREVIR\PIBRENTASVIR
     Indication: CHRONIC HEPATITIS C
     Dosage: 100/40
     Route: 048
     Dates: start: 20190314
  4. ATACAND [Suspect]
     Active Substance: CANDESARTAN CILEXETIL
     Dosage: 1/2 TABLET
     Route: 048

REACTIONS (6)
  - Muscular weakness [Recovered/Resolved]
  - Vertigo [Recovered/Resolved]
  - Diarrhoea [Unknown]
  - Potentiating drug interaction [Unknown]
  - Cerebellar syndrome [Unknown]
  - Syncope [Recovered/Resolved]
